FAERS Safety Report 21353515 (Version 2)
Quarter: 2022Q3

REPORT INFORMATION
  Report Type: Report from Study
  Country: BE (occurrence: None)
  Receive Date: 20220920
  Receipt Date: 20220929
  Transmission Date: 20221026
  Serious: Yes (Hospitalization)
  Sender: FDA-Public Use
  Company Number: BE-ROCHE-3178893

PATIENT
  Age: 86 Year
  Sex: Male
  Weight: 80 kg

DRUGS (7)
  1. ATEZOLIZUMAB [Suspect]
     Active Substance: ATEZOLIZUMAB
     Indication: Bladder transitional cell carcinoma
     Dosage: DATE OF LAST ADMINISTRATION OF ATEZOLIZUMAB BEFORE EVENT WAS 8/SEP/2022.
     Route: 041
     Dates: start: 20220908
  2. BCG VACCINE [Suspect]
     Active Substance: BCG VACCINE
     Indication: Bladder transitional cell carcinoma
     Dosage: DATE OF LAST ADMINISTRATION OF BCG INSTILLATION BEFORE EVENT WAS 8/SEP/2022.
     Route: 065
     Dates: start: 20220908
  3. ASPIRIN [Concomitant]
     Active Substance: ASPIRIN
     Indication: Cerebrovascular accident
     Route: 048
     Dates: start: 202011
  4. HYDREA [Concomitant]
     Active Substance: HYDROXYUREA
     Indication: Thrombocytopenia
     Route: 048
     Dates: start: 20201204
  5. SILODOSIN [Concomitant]
     Active Substance: SILODOSIN
     Indication: Benign prostatic hyperplasia
     Route: 048
     Dates: start: 20220607
  6. ALLOPURINOL [Concomitant]
     Active Substance: ALLOPURINOL
     Indication: Gout
     Route: 048
     Dates: start: 20201111
  7. BELSAR [Concomitant]
     Indication: Hypertension
     Dates: start: 1986

REACTIONS (2)
  - Fall [Not Recovered/Not Resolved]
  - Escherichia urinary tract infection [Recovered/Resolved]

NARRATIVE: CASE EVENT DATE: 20220911
